FAERS Safety Report 13965813 (Version 3)
Quarter: 2017Q3

REPORT INFORMATION
  Report Type: Spontaneous
  Country: ZA (occurrence: ZA)
  Receive Date: 20170913
  Receipt Date: 20170925
  Transmission Date: 20171128
  Serious: Yes (Death)
  Sender: FDA-Public Use
  Company Number: ZA-PFIZER INC-2017392656

PATIENT

DRUGS (10)
  1. PANAFCORT [Suspect]
     Active Substance: PREDNISONE
     Dosage: UNK
  2. WARFARIN [Suspect]
     Active Substance: WARFARIN
     Dosage: UNK
  3. ZOCOR [Suspect]
     Active Substance: SIMVASTATIN
     Dosage: UNK
  4. RENITEC /00574902/ [Suspect]
     Active Substance: ENALAPRIL MALEATE
     Dosage: UNK
  5. FOLIC ACID. [Suspect]
     Active Substance: FOLIC ACID
     Dosage: UNK
  6. XANOR [Suspect]
     Active Substance: ALPRAZOLAM
     Dosage: UNK
  7. ONE ALPHA [Suspect]
     Active Substance: ALFACALCIDOL
     Dosage: UNK
  8. METHOTREXATE. [Suspect]
     Active Substance: METHOTREXATE
     Dosage: UNK
  9. TOPZOLE [Suspect]
     Active Substance: PANTOPRAZOLE SODIUM
     Indication: GASTROOESOPHAGEAL REFLUX DISEASE
     Dosage: UNK
     Route: 048
  10. DORMONOCT [Suspect]
     Active Substance: LOPRAZOLAM
     Dosage: UNK
     Route: 065

REACTIONS (1)
  - Death [Fatal]
